FAERS Safety Report 8160666-X (Version None)
Quarter: 2012Q1

REPORT INFORMATION
  Report Type: 
  Country: None (occurrence: None)
  Receive Date: 20120223
  Receipt Date: 20120221
  Transmission Date: 20120608
  Serious: No
  Sender: FDA-Public Use
  Company Number: US-PFIZER INC-2012047047

PATIENT

DRUGS (3)
  1. ACETAMINOPHEN AND HYDROCODONE BITARTRATE [Interacting]
     Indication: OSTEOARTHRITIS
     Dosage: (7.5-500) UNK
  2. CHANTIX [Suspect]
     Dosage: UNK
  3. CYMBALTA [Interacting]
     Indication: OSTEOARTHRITIS
     Dosage: 60 MG, UNK

REACTIONS (5)
  - INSOMNIA [None]
  - ARTHRALGIA [None]
  - ABNORMAL DREAMS [None]
  - NAUSEA [None]
  - DRUG INTERACTION [None]
